FAERS Safety Report 10099548 (Version 2)
Quarter: 2014Q3

REPORT INFORMATION
  Report Type: Spontaneous
  Country: BR (occurrence: BR)
  Receive Date: 20140423
  Receipt Date: 20140702
  Transmission Date: 20150326
  Serious: Yes (Other)
  Sender: FDA-Public Use
  Company Number: BR-ASTRAZENECA-2014SE26456

PATIENT
  Age: 62 Year
  Sex: Female
  Weight: 106 kg

DRUGS (5)
  1. SELOZOK [Suspect]
     Active Substance: METOPROLOL SUCCINATE
     Indication: HYPERTENSION
     Dosage: DAILY
     Route: 048
     Dates: start: 2009
  2. ROSUCOR (ROSUVASTATIN) [Suspect]
     Active Substance: ROSUVASTATIN CALCIUM
     Indication: CARDIAC ANEURYSM
     Dosage: DAILY
     Route: 048
     Dates: start: 20140321, end: 20140404
  3. CITALOPRAM [Concomitant]
     Active Substance: CITALOPRAM HYDROBROMIDE
     Indication: DEPRESSION
     Dosage: DAILY
     Route: 048
     Dates: start: 2013
  4. BRILINTA [Suspect]
     Active Substance: TICAGRELOR
     Indication: CARDIAC ANEURYSM
     Dosage: TWO TIMES A DAY
     Route: 048
     Dates: start: 20140321, end: 20140404
  5. CITALOPRAM [Concomitant]
     Active Substance: CITALOPRAM HYDROBROMIDE
     Indication: PANIC DISORDER
     Dosage: DAILY
     Route: 048
     Dates: start: 2013

REACTIONS (11)
  - Labyrinthitis [Recovered/Resolved]
  - Abdominal pain upper [Recovered/Resolved]
  - Haematochezia [Recovered/Resolved]
  - Blood pressure increased [Recovered/Resolved]
  - Panic disorder [Recovering/Resolving]
  - Depression [Recovering/Resolving]
  - Cardiac aneurysm [Recovered/Resolved]
  - Dyspnoea [Recovered/Resolved]
  - Tremor [Recovered/Resolved]
  - Haematoma [Recovered/Resolved]
  - Drug ineffective [Unknown]

NARRATIVE: CASE EVENT DATE: 2012
